FAERS Safety Report 20526219 (Version 2)
Quarter: 2023Q1

REPORT INFORMATION
  Report Type: Spontaneous
  Country: GB (occurrence: GB)
  Receive Date: 20220228
  Receipt Date: 20230117
  Transmission Date: 20230417
  Serious: Yes (Death, Life-Threatening, Hospitalization, Other)
  Sender: FDA-Public Use
  Company Number: GB-009507513-2202GBR006925

PATIENT
  Age: 73 Year
  Sex: Female

DRUGS (1)
  1. PEMBROLIZUMAB [Suspect]
     Active Substance: PEMBROLIZUMAB
     Indication: Lung adenocarcinoma
     Dosage: 200 MILLIGRAM

REACTIONS (3)
  - Immune-mediated myasthenia gravis [Fatal]
  - Immune-mediated myocarditis [Fatal]
  - Immune-mediated myositis [Fatal]
